FAERS Safety Report 7797104-2 (Version None)
Quarter: 2011Q4

REPORT INFORMATION
  Report Type: 
  Country: None (occurrence: None)
  Receive Date: 20111003
  Receipt Date: 20110922
  Transmission Date: 20120403
  Serious: Yes (Other)
  Sender: FDA-Public Use
  Company Number: 2011MA014367

PATIENT
  Age: 30 Year
  Sex: Male

DRUGS (5)
  1. LEVETIRACETAM [Suspect]
     Indication: EPILEPSY
     Dosage: 1000 MG;QD
  2. VALPROIC ACID [Suspect]
     Dosage: 2000 MG;QD
  3. CLOZARIL [Suspect]
     Indication: SCHIZOPHRENIA
     Dosage: 400 MG;QD
     Dates: start: 20040428
  4. LACTULOSE [Concomitant]
  5. LANSOPRAZOLE [Concomitant]

REACTIONS (3)
  - NEUTROPHIL COUNT DECREASED [None]
  - CONSTIPATION [None]
  - WHITE BLOOD CELL COUNT DECREASED [None]
